FAERS Safety Report 6088011-4 (Version None)
Quarter: 2009Q1

REPORT INFORMATION
  Report Type: 
  Country: None (occurrence: None)
  Receive Date: 20090219
  Receipt Date: 20090212
  Transmission Date: 20090719
  Serious: Yes (Hospitalization)
  Sender: FDA-Public Use
  Company Number: 2008AL010612

PATIENT
  Age: 46 Year
  Sex: Male

DRUGS (4)
  1. MINOXIDIL EXTRA STRENGTH (FOR MEN) [Suspect]
     Indication: ALOPECIA
     Dosage: BID; TOP
     Route: 061
     Dates: start: 20080701, end: 20080708
  2. DEPAKOTE [Concomitant]
  3. ZOLOFT [Concomitant]
  4. LITHIUM [Concomitant]

REACTIONS (2)
  - OEDEMA PERIPHERAL [None]
  - PAIN [None]
